FAERS Safety Report 8791881 (Version 2)
Quarter: 2012Q4

REPORT INFORMATION
  Report Type: 
  Country: IT (occurrence: IT)
  Receive Date: 20120918
  Receipt Date: 20121016
  Transmission Date: 20130627
  Serious: Yes (Hospitalization)
  Sender: FDA-Public Use
  Company Number: IT-ELI_LILLY_AND_COMPANY-IT201209001307

PATIENT
  Age: 84 Year
  Sex: Male

DRUGS (5)
  1. HUMULIN REGULAR [Suspect]
     Indication: DIABETES MELLITUS
     Dosage: 20 u, qd
     Route: 058
     Dates: start: 20120301, end: 20120829
  2. HUMULIN REGULAR [Suspect]
     Dosage: 15 u, qd
     Dates: start: 20120829
  3. HUMULIN NPH [Suspect]
     Indication: DIABETES MELLITUS
     Dosage: 10 u, qd
     Dates: start: 20120301
  4. SOTALOL [Concomitant]
     Dosage: 160 mg, UNK
     Route: 048
  5. ASCRIPTIN [Concomitant]
     Dosage: 0.5 DF, unknown
     Route: 048

REACTIONS (5)
  - Aphasia [Recovered/Resolved]
  - Bradykinesia [Recovered/Resolved]
  - Bradyphrenia [Recovered/Resolved]
  - Hyperhidrosis [Recovered/Resolved]
  - Hypoglycaemia [Recovered/Resolved]
